FAERS Safety Report 5881611-3 (Version None)
Quarter: 2008Q3

REPORT INFORMATION
  Report Type: 
  Country: None (occurrence: None)
  Receive Date: 20080912
  Receipt Date: 20080630
  Transmission Date: 20090109
  Serious: No
  Sender: FDA-Public Use
  Company Number: US-ABBOTT-08P-163-0460216-00

PATIENT
  Sex: Female
  Weight: 69.916 kg

DRUGS (4)
  1. HUMIRA [Suspect]
     Indication: PSORIASIS
     Route: 058
     Dates: start: 20071101
  2. HUMIRA [Suspect]
     Indication: PSORIATIC ARTHROPATHY
  3. SIMTHIS [Concomitant]
     Indication: PSORIATIC ARTHROPATHY
     Dosage: EVERY 6 MONTHS
     Route: 050
  4. MORPHINE [Concomitant]
     Indication: PAIN
     Dosage: IMPLANTED PUMP
     Dates: start: 19990101

REACTIONS (1)
  - INJECTION SITE PAIN [None]
